FAERS Safety Report 7297396-2 (Version None)
Quarter: 2011Q1

REPORT INFORMATION
  Report Type: 
  Country: None (occurrence: None)
  Receive Date: 20110216
  Receipt Date: 20110203
  Transmission Date: 20110831
  Serious: Yes (Death, Hospitalization, Other)
  Sender: FDA-Public Use
  Company Number: CH-ELI_LILLY_AND_COMPANY-CH201101004613

PATIENT
  Sex: Female
  Weight: 59 kg

DRUGS (17)
  1. CIPRALEX [Concomitant]
     Dosage: 10 MG, DAILY (1/D)
     Route: 065
  2. SEROQUEL [Concomitant]
     Dosage: 25 MG, DAILY (1/D)
     Route: 065
  3. OLFEN /00372302/ [Concomitant]
     Dosage: UNK, UNKNOWN
     Route: 065
  4. BELOC ZOK [Concomitant]
     Dosage: 50 MG, DAILY (1/D)
     Route: 065
  5. NORVASC [Concomitant]
     Dosage: 5 MG, UNKNOWN
     Route: 065
  6. FRAGMIN [Concomitant]
     Dosage: 2500 E, DAILY (1/D)
     Route: 065
  7. LASIX [Concomitant]
     Dosage: 250 MG, 1/2 3/D
     Route: 065
  8. TRIATEC [Concomitant]
     Dosage: 5 MG, DAILY (1/D)
     Route: 065
  9. METOLAZON [Concomitant]
     Dosage: 5 MG, 2/D
     Route: 065
  10. EFFIENT [Suspect]
     Indication: ACUTE CORONARY SYNDROME
     Dosage: UNK, UNKNOWN
     Route: 065
     Dates: start: 20100422
  11. ELTROXIN [Concomitant]
     Dosage: 0.05 MG, DAILY (1/D)
     Route: 065
  12. OCULAR LUBRICANT /00445101/ [Concomitant]
     Dosage: UNK, 2/D
     Route: 065
  13. ASPIRIN [Concomitant]
     Dosage: 100 MG, DAILY (1/D)
     Route: 065
  14. TOREM [Concomitant]
     Dosage: 20 MG, UNKNOWN
     Route: 065
  15. SORTIS [Concomitant]
     Dosage: 40 MG, DAILY (1/D)
     Route: 065
  16. DOSPIR [Concomitant]
     Dosage: UNK, 4/D
     Route: 065
  17. PANTOPRAZOLE [Concomitant]
     Dosage: 40 MG, 2/D
     Route: 065

REACTIONS (14)
  - CHRONIC OBSTRUCTIVE PULMONARY DISEASE [None]
  - GASTRIC PERFORATION [None]
  - NEPHROANGIOSCLEROSIS [None]
  - SEPSIS [None]
  - GENERAL PHYSICAL HEALTH DETERIORATION [None]
  - PERITONITIS [None]
  - THROMBOPHLEBITIS [None]
  - FLUID OVERLOAD [None]
  - VENTRICULAR FIBRILLATION [None]
  - CARDIAC FAILURE [None]
  - PLEURAL EFFUSION [None]
  - GASTRIC ULCER [None]
  - GASTROINTESTINAL HAEMORRHAGE [None]
  - RENAL FAILURE CHRONIC [None]
